FAERS Safety Report 8273548-X (Version None)
Quarter: 2012Q2

REPORT INFORMATION
  Report Type: 
  Country: None (occurrence: None)
  Receive Date: 20120411
  Receipt Date: 20120126
  Transmission Date: 20120825
  Serious: No
  Sender: FDA-Public Use
  Company Number: US-TEVA-2011006382

PATIENT
  Weight: 49.032 kg

DRUGS (7)
  1. CLONAZEPAM [Concomitant]
  2. ATENOLOL [Concomitant]
  3. NUVIGIL [Suspect]
     Indication: FATIGUE
     Dosage: 1/2 TABLET DAILY
     Route: 048
     Dates: start: 20101201
  4. PRAVASTATIN [Concomitant]
  5. SYNTHROID [Concomitant]
  6. LAMICTAL [Concomitant]
  7. NORTRIPTYLINE HCL [Concomitant]

REACTIONS (2)
  - PARAESTHESIA [None]
  - TREMOR [None]
